FAERS Safety Report 20592842 (Version 1)
Quarter: 2022Q1

REPORT INFORMATION
  Report Type: Spontaneous
  Country: US (occurrence: US)
  Receive Date: 20220315
  Receipt Date: 20220315
  Transmission Date: 20220424
  Serious: No
  Sender: FDA-Public Use
  Company Number: US-DENTSPLY-2022SCDP000051

PATIENT
  Sex: Female

DRUGS (1)
  1. ORAQIX [Suspect]
     Active Substance: LIDOCAINE\PRILOCAINE
     Indication: Product used for unknown indication
     Dosage: UNK 20PK - COLLAR
     Route: 065

REACTIONS (2)
  - Injection site haemorrhage [Unknown]
  - Accidental exposure to product [Unknown]
